FAERS Safety Report 8904329 (Version 5)
Quarter: 2013Q2

REPORT INFORMATION
  Report Type: Spontaneous
  Country: US (occurrence: US)
  Receive Date: 20121113
  Receipt Date: 20130611
  Transmission Date: 20140414
  Serious: Yes (Hospitalization, Disabling, Other)
  Sender: FDA-Public Use
  Company Number: US-009507513-1211USA003834

PATIENT
  Sex: Female
  Weight: 60.32 kg

DRUGS (4)
  1. FOSAMAX [Suspect]
     Indication: PREMATURE MENOPAUSE
     Dosage: 70 MG, UNK
     Route: 048
     Dates: start: 200111
  2. FOSAMAX [Suspect]
     Indication: OSTEOPOROSIS
  3. ALENDRONATE SODIUM [Suspect]
     Indication: PREMATURE MENOPAUSE
     Dosage: 70 MG, UNK
     Route: 048
     Dates: start: 200809, end: 201101
  4. HORMONES (UNSPECIFIED) [Concomitant]
     Dosage: UNK
     Dates: start: 1996, end: 2003

REACTIONS (27)
  - Open reduction of fracture [Unknown]
  - Open reduction of fracture [Unknown]
  - Femur fracture [Not Recovered/Not Resolved]
  - Low turnover osteopathy [Not Recovered/Not Resolved]
  - Basal cell carcinoma [Unknown]
  - Osteoporosis [Not Recovered/Not Resolved]
  - Parathyroidectomy [Unknown]
  - Femur fracture [Not Recovered/Not Resolved]
  - Invasive ductal breast carcinoma [Unknown]
  - Femur fracture [Not Recovered/Not Resolved]
  - Femur fracture [Not Recovered/Not Resolved]
  - Dysphagia [Recovered/Resolved]
  - Oral surgery [Unknown]
  - Radiotherapy [Unknown]
  - Family stress [Unknown]
  - Osteopenia [Unknown]
  - Exostosis [Unknown]
  - Malignant breast lump removal [Unknown]
  - Blood calcium increased [Unknown]
  - Spinal osteoarthritis [Unknown]
  - Depression [Unknown]
  - Hyperparathyroidism [Unknown]
  - Parathyroid tumour benign [Unknown]
  - Skin neoplasm excision [Unknown]
  - Nipple disorder [Not Recovered/Not Resolved]
  - Haemoglobin decreased [Recovering/Resolving]
  - Off label use [Unknown]
